FAERS Safety Report 5313059-4 (Version None)
Quarter: 2007Q2

REPORT INFORMATION
  Report Type: 
  Country: None (occurrence: None)
  Receive Date: 20070430
  Receipt Date: 20070418
  Transmission Date: 20071010
  Serious: Yes (Other)
  Sender: FDA-Public Use
  Company Number: JP-PFIZER INC-2007031700

PATIENT
  Age: 79 Year
  Sex: Male

DRUGS (3)
  1. ZYVOX [Suspect]
     Indication: STAPHYLOCOCCAL INFECTION
     Dosage: DAILY DOSE:1200MG
     Route: 042
     Dates: start: 20070329, end: 20070418
  2. GLYBURIDE [Concomitant]
     Indication: DIABETES MELLITUS
     Route: 048
  3. BASEN [Concomitant]
     Route: 048

REACTIONS (3)
  - ANAEMIA [None]
  - HYPOGLYCAEMIA [None]
  - PLATELET COUNT DECREASED [None]
